FAERS Safety Report 4799779-9 (Version None)
Quarter: 2005Q4

REPORT INFORMATION
  Report Type: 
  Country: None (occurrence: None)
  Receive Date: 20051012
  Receipt Date: 20051012
  Transmission Date: 20060501
  Serious: Yes (Hospitalization)
  Sender: FDA-Public Use
  Company Number: None

PATIENT

DRUGS (8)
  1. DEPAKOTE [Suspect]
     Indication: CONVULSION
     Dosage: PO (THERAPY DATES: PRIOR TO ADMISSION)
     Route: 048
  2. DILANTIN [Concomitant]
  3. TYLENOL (CAPLET) [Concomitant]
  4. NEURONTIN [Concomitant]
  5. PERIOGARD [Concomitant]
  6. LEVOXYL [Concomitant]
  7. RISPERDAL [Concomitant]
  8. PAROXETINE HCL [Concomitant]

REACTIONS (3)
  - DIZZINESS [None]
  - NAUSEA [None]
  - VOMITING [None]
